FAERS Safety Report 8483100-9 (Version None)
Quarter: 2012Q3

REPORT INFORMATION
  Report Type: 
  Country: None (occurrence: None)
  Receive Date: 20120702
  Receipt Date: 20120625
  Transmission Date: 20120928
  Serious: Yes (Death, Hospitalization)
  Sender: FDA-Public Use
  Company Number: DE-ROCHE-1054076

PATIENT
  Sex: Female
  Weight: 68 kg

DRUGS (17)
  1. HYDROCHLOROTHIAZIDE [Concomitant]
  2. CANDIO HERMAL [Concomitant]
     Dates: start: 20111118, end: 20120208
  3. AMLODIPINE [Concomitant]
  4. CALCIUM CARBONATE/CHOLECALCIFEROL [Concomitant]
     Dosage: 600 MG/400 I.E
     Dates: start: 20111119
  5. AZATHIOPRINE [Concomitant]
     Route: 048
     Dates: start: 20120111, end: 20120208
  6. METHYLPREDNISOLONE [Concomitant]
     Route: 042
  7. MABTHERA [Suspect]
     Indication: OCULAR PEMPHIGOID
     Route: 042
     Dates: start: 20120206
  8. DEXAMETHASONE [Suspect]
     Indication: OCULAR PEMPHIGOID
     Route: 042
     Dates: start: 20120203, end: 20120205
  9. AZATHIOPRINE [Concomitant]
     Indication: OCULAR PEMPHIGOID
     Route: 048
     Dates: start: 20111119, end: 20120110
  10. EPROSARTAN [Concomitant]
  11. ENOXAPARIN SODIUM [Concomitant]
     Dates: start: 20111118, end: 20120206
  12. INSUMAN RAPID [Concomitant]
     Dosage: EIE
     Dates: start: 20110203, end: 20120206
  13. ACETAMINOPHEN [Concomitant]
     Route: 048
  14. CLEMASTINE FUMARATE [Concomitant]
     Dosage: 1 AMP
     Route: 042
  15. PANTOPRAZOLE [Concomitant]
     Dates: start: 20111118, end: 20120208
  16. CANDIO HERMAL [Concomitant]
     Dosage: 2-2-2
     Dates: start: 20111118, end: 20120208
  17. ATENOLOL [Concomitant]

REACTIONS (5)
  - CAROTID ARTERY STENOSIS [None]
  - ATRIAL FIBRILLATION [None]
  - TACHYARRHYTHMIA [None]
  - CEREBRAL ARTERY OCCLUSION [None]
  - CEREBRAL INFARCTION [None]
